FAERS Safety Report 5322860-2 (Version None)
Quarter: 2007Q2

REPORT INFORMATION
  Report Type: 
  Country: None (occurrence: None)
  Receive Date: 20070511
  Receipt Date: 20070501
  Transmission Date: 20071010
  Serious: Yes (Other)
  Sender: FDA-Public Use
  Company Number: IN-PFIZER INC-2007035821

PATIENT
  Sex: Female

DRUGS (1)
  1. MAGNEX [Suspect]
     Indication: ANTI-INFECTIVE THERAPY
     Route: 042

REACTIONS (1)
  - COAGULATION TIME PROLONGED [None]
